FAERS Safety Report 12310896 (Version 1)
Quarter: 2016Q2

REPORT INFORMATION
  Report Type: Spontaneous
  Country: US (occurrence: US)
  Receive Date: 20160427
  Receipt Date: 20160427
  Transmission Date: 20160815
  Serious: Yes (Other)
  Sender: FDA-Public Use
  Company Number: US-LPDUSPRD-20160341

PATIENT
  Age: 21 Year
  Sex: Female

DRUGS (1)
  1. EPINEPHRINE INJECTION, USP (1071-25) [Suspect]
     Active Substance: EPINEPHRINE
     Dosage: 0.3 MG (1:1000)
     Route: 042

REACTIONS (2)
  - Stress cardiomyopathy [Unknown]
  - Incorrect route of drug administration [Recovered/Resolved]
